FAERS Safety Report 6637451-0 (Version None)
Quarter: 2010Q1

REPORT INFORMATION
  Report Type: 
  Country: None (occurrence: None)
  Receive Date: 20100311
  Receipt Date: 20100301
  Transmission Date: 20100710
  Serious: Yes (Life-Threatening)
  Sender: FDA-Public Use
  Company Number: 203089

PATIENT
  Age: 74 Year
  Sex: Female
  Weight: 38.3 kg

DRUGS (25)
  1. DEXMEDETOMIDINE HYDROCHLORIDE [Suspect]
     Indication: SEDATIVE THERAPY
     Dosage: SEE IMAGE
     Route: 042
     Dates: start: 20080808, end: 20080808
  2. DEXMEDETOMIDINE HYDROCHLORIDE [Suspect]
     Indication: SEDATIVE THERAPY
     Dosage: SEE IMAGE
     Route: 042
     Dates: start: 20080808, end: 20080808
  3. DEXMEDETOMIDINE HYDROCHLORIDE [Suspect]
     Indication: SEDATIVE THERAPY
     Dosage: SEE IMAGE
     Route: 042
     Dates: start: 20080808, end: 20080808
  4. DEXMEDETOMIDINE HYDROCHLORIDE [Suspect]
     Indication: SEDATIVE THERAPY
     Dosage: SEE IMAGE
     Route: 042
     Dates: start: 20080808, end: 20080808
  5. DEXMEDETOMIDINE HYDROCHLORIDE [Suspect]
     Indication: SEDATIVE THERAPY
     Dosage: SEE IMAGE
     Route: 042
     Dates: start: 20080808, end: 20080808
  6. FENTANYL [Suspect]
     Indication: INDUCTION OF ANAESTHESIA
     Dosage: 200 MCG, INTRAVENOUS DRIP; 200 MCG; 900 MCG; 50 MCG/HR
     Route: 041
     Dates: start: 20080808, end: 20080808
  7. FENTANYL [Suspect]
     Indication: MAINTENANCE OF ANAESTHESIA
     Dosage: 200 MCG, INTRAVENOUS DRIP; 200 MCG; 900 MCG; 50 MCG/HR
     Route: 041
     Dates: start: 20080808, end: 20080808
  8. FENTANYL [Suspect]
     Indication: INDUCTION OF ANAESTHESIA
     Dosage: 200 MCG, INTRAVENOUS DRIP; 200 MCG; 900 MCG; 50 MCG/HR
     Route: 041
     Dates: start: 20080808, end: 20080808
  9. FENTANYL [Suspect]
     Indication: MAINTENANCE OF ANAESTHESIA
     Dosage: 200 MCG, INTRAVENOUS DRIP; 200 MCG; 900 MCG; 50 MCG/HR
     Route: 041
     Dates: start: 20080808, end: 20080808
  10. FENTANYL [Suspect]
     Indication: INDUCTION OF ANAESTHESIA
     Dosage: 200 MCG, INTRAVENOUS DRIP; 200 MCG; 900 MCG; 50 MCG/HR
     Route: 041
     Dates: start: 20080808, end: 20080808
  11. FENTANYL [Suspect]
     Indication: MAINTENANCE OF ANAESTHESIA
     Dosage: 200 MCG, INTRAVENOUS DRIP; 200 MCG; 900 MCG; 50 MCG/HR
     Route: 041
     Dates: start: 20080808, end: 20080808
  12. SEVOFRANE [Suspect]
     Indication: MAINTENANCE OF ANAESTHESIA
     Dosage: INHALATION
     Route: 055
     Dates: start: 20080808, end: 20080808
  13. ULTIVA [Suspect]
     Indication: ANALGESIC THERAPY
     Dosage: 1 - 1.5 GMMA, INTRAVENOUS
     Route: 042
     Dates: start: 20080808, end: 20080808
  14. DORMICUM /00036201/ [Concomitant]
  15. MUSCULAX [Concomitant]
  16. HUMULIN R [Concomitant]
  17. SOLITA T /01128901/ [Concomitant]
  18. SOLU-CORTEF [Concomitant]
  19. FOSMICIN S [Concomitant]
  20. ADONA /00056903/ [Concomitant]
  21. TRANSAMIN [Concomitant]
  22. RED BLOOD CELLS [Concomitant]
  23. CORTICOSTEROIDS [Concomitant]
  24. THYRODIN [Concomitant]
  25. PROPOFOL [Concomitant]

REACTIONS (9)
  - ANXIETY [None]
  - BLOOD PRESSURE INCREASED [None]
  - DRUG INTERACTION [None]
  - FEELING ABNORMAL [None]
  - INSOMNIA [None]
  - RESPIRATORY ACIDOSIS [None]
  - RESPIRATORY ARREST [None]
  - RESPIRATORY DEPRESSION [None]
  - UPPER AIRWAY OBSTRUCTION [None]
